FAERS Safety Report 25494888 (Version 3)
Quarter: 2025Q4

REPORT INFORMATION
  Report Type: Spontaneous
  Country: US (occurrence: US)
  Receive Date: 20250630
  Receipt Date: 20251126
  Transmission Date: 20260117
  Serious: No
  Sender: PFIZER
  Company Number: US-PFIZER INC-202500130377

PATIENT
  Age: 73 Year
  Sex: Female
  Weight: 78.925 kg

DRUGS (1)
  1. IBRANCE [Suspect]
     Active Substance: PALBOCICLIB
     Indication: Neoplasm malignant
     Dosage: 125 MG, CYCLIC (21 DAYS ON, 7 DAYS OFF)
     Route: 048

REACTIONS (6)
  - Dyspepsia [Recovering/Resolving]
  - Eructation [Recovering/Resolving]
  - Dyspnoea [Recovering/Resolving]
  - Hiccups [Recovering/Resolving]
  - Speech disorder [Recovering/Resolving]
  - Bone disorder [Recovering/Resolving]
